FAERS Safety Report 19694319 (Version 1)
Quarter: 2021Q3

REPORT INFORMATION
  Report Type: Spontaneous
  Country: NL (occurrence: NL)
  Receive Date: 20210812
  Receipt Date: 20210812
  Transmission Date: 20211014
  Serious: Yes (Disabling)
  Sender: FDA-Public Use
  Company Number: NL-MYLANLABS-2021M1049738

PATIENT
  Sex: Female
  Weight: 60 kg

DRUGS (4)
  1. ACETYLSALICYLZUUR [Concomitant]
     Active Substance: ASPIRIN
     Dosage: 80 MILLIGRAM, TABLET
  2. ESOMEPRAZOL                        /01479301/ [Concomitant]
     Active Substance: ESOMEPRAZOLE
     Dosage: 40 MILLIGRAM, MAAGSAPRESISTENTE CAPSULE
  3. MIRTAZAPINE MYLAN 15 MG FILMTABLETTEN [Suspect]
     Active Substance: MIRTAZAPINE
     Indication: PANIC DISORDER
     Dosage: 1 DOSAGE FORM, QD (1X DAILY 1 PIECE)
     Route: 065
     Dates: start: 20080714
  4. LISINOPRIL. [Concomitant]
     Active Substance: LISINOPRIL
     Dosage: 20 MILLIGRAM, TABLET

REACTIONS (3)
  - Anxiety [Recovered/Resolved]
  - Panic reaction [Recovered/Resolved]
  - Therapeutic response unexpected [Unknown]
